FAERS Safety Report 9337375 (Version 2)
Quarter: 2013Q3

REPORT INFORMATION
  Report Type: Spontaneous
  Country: KR (occurrence: KR)
  Receive Date: 20130607
  Receipt Date: 20130726
  Transmission Date: 20140515
  Serious: Yes (Other)
  Sender: FDA-Public Use
  Company Number: KR-GLAXOSMITHKLINE-B0897750A

PATIENT
  Sex: Male

DRUGS (4)
  1. SEROXAT [Suspect]
     Indication: DEPRESSION
     Route: 065
  2. HYPERTENSION MED [Concomitant]
     Indication: HYPERTENSION
  3. ANTI-CHOLESTEROL MEDICATION [Concomitant]
     Indication: BLOOD CHOLESTEROL
  4. ASPIRIN [Concomitant]

REACTIONS (4)
  - Dementia [Unknown]
  - Memory impairment [Not Recovered/Not Resolved]
  - Depression [Not Recovered/Not Resolved]
  - Disturbance in attention [Unknown]
